FAERS Safety Report 15044107 (Version 1)
Quarter: 2018Q2

REPORT INFORMATION
  Report Type: Report from Study
  Country: ES (occurrence: ES)
  Receive Date: 20180621
  Receipt Date: 20180621
  Transmission Date: 20180711
  Serious: Yes (Hospitalization)
  Sender: FDA-Public Use
  Company Number: ES-PURDUE PHARMA-GBR-2018-0056787

PATIENT
  Age: 69 Year
  Sex: Male

DRUGS (26)
  1. MORPHINE SULFATE. [Suspect]
     Active Substance: MORPHINE SULFATE
     Indication: CANCER PAIN
     Dosage: 400 MG, Q12H
     Route: 065
     Dates: start: 201610, end: 201705
  2. MORPHINE SULFATE. [Suspect]
     Active Substance: MORPHINE SULFATE
     Dosage: 160 MG IN THE MORNING MAINTAINING 130 MG AT NIGHT
     Route: 065
     Dates: start: 201411
  3. FENTANYL. [Suspect]
     Active Substance: FENTANYL
     Dosage: 300 MCG AT NIGHT WITH DECUBITUS AND 200 MCG DURING THE DAY, 2 OR 3 RESCUES A DAY IN TOTAL
     Route: 060
     Dates: start: 201603, end: 201610
  4. DOCETAXEL. [Concomitant]
     Active Substance: DOCETAXEL
     Indication: PROSTATE CANCER
     Dosage: 6 CYCLES
     Route: 065
  5. FENTANYL. [Suspect]
     Active Substance: FENTANYL
     Dosage: 200 MCG PER RESCUE
     Route: 060
     Dates: start: 201402, end: 201411
  6. PREDNISONE. [Concomitant]
     Active Substance: PREDNISONE
     Indication: PROSTATE CANCER
     Dosage: 10 MG, DAILY
     Route: 065
     Dates: start: 201411
  7. MORPHINE SULFATE. [Suspect]
     Active Substance: MORPHINE SULFATE
     Dosage: 130 MG, Q12H
     Route: 065
     Dates: start: 201402
  8. MORPHINE SULFATE. [Suspect]
     Active Substance: MORPHINE SULFATE
     Dosage: 100 MG, Q12H
     Route: 065
     Dates: start: 201306, end: 201402
  9. FENTANYL. [Suspect]
     Active Substance: FENTANYL
     Dosage: 300 MCG, UNK
     Route: 060
     Dates: start: 201705
  10. ABIRATERONE [Concomitant]
     Active Substance: ABIRATERONE
     Indication: PROSTATE CANCER
     Dosage: UNKNOWN
     Route: 065
     Dates: start: 201411, end: 201610
  11. MORPHINE SULFATE. [Suspect]
     Active Substance: MORPHINE SULFATE
     Dosage: 130 MG, Q12H
     Route: 065
     Dates: end: 201603
  12. FENTANYL. [Suspect]
     Active Substance: FENTANYL
     Indication: BREAKTHROUGH PAIN
     Dosage: 300 MCG PER RESCUE, ABOUT THREE TIMES PER DAY
     Route: 060
  13. FENTANYL. [Suspect]
     Active Substance: FENTANYL
     Dosage: 400 MCG PER RESCUE
     Route: 060
     Dates: end: 201705
  14. FENTANYL. [Suspect]
     Active Substance: FENTANYL
     Dosage: 300 MCG FOR RESCUE
     Route: 060
     Dates: start: 201610
  15. FENTANYL. [Suspect]
     Active Substance: FENTANYL
     Dosage: 100 MCG AS A RESCUE
     Route: 060
     Dates: start: 201306, end: 201402
  16. MORPHINE                           /00036303/ [Suspect]
     Active Substance: MORPHINE HYDROCHLORIDE
     Indication: CANCER PAIN
     Dosage: UNKNOWN
     Route: 058
     Dates: start: 201801
  17. SCOPOLAMINE                        /00008701/ [Suspect]
     Active Substance: SCOPOLAMINE
     Indication: CANCER PAIN
     Dosage: UNK
     Route: 065
     Dates: start: 201705
  18. DEXAMETHASONE. [Suspect]
     Active Substance: DEXAMETHASONE
     Indication: CANCER PAIN
     Dosage: UNK
     Route: 065
     Dates: start: 201705
  19. ZOLEDRONIC ACID [Concomitant]
     Active Substance: ZOLEDRONIC ACID
     Indication: PRODUCT USED FOR UNKNOWN INDICATION
     Dosage: UNKNOWN
     Route: 065
     Dates: start: 201610
  20. FENTANYL. [Concomitant]
     Active Substance: FENTANYL
     Indication: CANCER PAIN
     Dosage: 300 MCG, EVERY 72 HOURS
     Route: 062
  21. MORPHINE SULFATE. [Suspect]
     Active Substance: MORPHINE SULFATE
     Dosage: 160 MG IN THE MORNING AND 260 MG IN THE EVENING
     Route: 065
     Dates: start: 201603, end: 201610
  22. FENTANYL. [Suspect]
     Active Substance: FENTANYL
     Dosage: 400 MCG PER RESCUE
     Route: 060
     Dates: start: 201801
  23. FENTANYL. [Suspect]
     Active Substance: FENTANYL
     Dosage: 200 MCG PER RESCUE
     Route: 060
     Dates: end: 201603
  24. FENTANYL. [Suspect]
     Active Substance: FENTANYL
     Dosage: 200 MCG PER RESCUE, 3 OR 4 TIMES PER DAY
     Route: 060
     Dates: start: 201411
  25. MORPHINE                           /00036303/ [Suspect]
     Active Substance: MORPHINE HYDROCHLORIDE
     Dosage: UNK
     Route: 065
     Dates: start: 201705
  26. DENOSUMAB [Concomitant]
     Active Substance: DENOSUMAB
     Indication: PRODUCT USED FOR UNKNOWN INDICATION
     Dosage: 120 MG, MONTHLY
     Route: 065
     Dates: start: 201610

REACTIONS (6)
  - Condition aggravated [Unknown]
  - Decreased appetite [Unknown]
  - Weight decreased [Unknown]
  - Inappropriate schedule of drug administration [Unknown]
  - Asthenia [Unknown]
  - Constipation [Recovering/Resolving]
